FAERS Safety Report 10542954 (Version 1)
Quarter: 2014Q4

REPORT INFORMATION
  Report Type: Spontaneous
  Country: US (occurrence: None)
  Receive Date: 20141023
  Receipt Date: 20141023
  Transmission Date: 20150529
  Serious: Yes (Other)
  Sender: FDA-Public Use
  Company Number: 54973 AE 1570

PATIENT
  Age: 65 Year
  Sex: Female

DRUGS (6)
  1. HYLAND^S CALMS TABLETS [Suspect]
     Active Substance: HOMEOPATHICS
     Indication: INSOMNIA
     Dosage: 1,2,OR3TABS@NIGHT BY MOUTH
     Route: 048
  2. CALMS FORTE 4 KIDS [Suspect]
     Active Substance: HOMEOPATHICS
     Indication: PYREXIA
     Dosage: 1,2,3ORTABS@NIGHTBYMOUTH
     Route: 048
  3. HYLAND^S RESTFUL LEGS TABLETS [Suspect]
     Active Substance: HOMEOPATHICS
     Indication: RESTLESS LEGS SYNDROME
     Dosage: 1-2 TABS @NIGHT BY MOUTH
  4. CALMS FORTE 4 KIDS [Suspect]
     Active Substance: HOMEOPATHICS
     Indication: TENSION
     Dosage: 1,2,3ORTABS@NIGHTBYMOUTH
     Route: 048
  5. HUMULIN N AND R [Concomitant]
  6. PANTOPRAZOLE [Concomitant]
     Active Substance: PANTOPRAZOLE SODIUM

REACTIONS (6)
  - Creatinine renal clearance increased [None]
  - Anxiety [None]
  - Liver function test abnormal [None]
  - Poor quality sleep [None]
  - Nocturia [None]
  - Renal impairment [None]

NARRATIVE: CASE EVENT DATE: 20141001
